FAERS Safety Report 12289263 (Version 1)
Quarter: 2016Q2

REPORT INFORMATION
  Report Type: Spontaneous
  Country: US (occurrence: US)
  Receive Date: 20160421
  Receipt Date: 20160421
  Transmission Date: 20160815
  Serious: No
  Sender: FDA-Public Use
  Company Number: US-ALVOGEN-2015-ALVOGEN-015677

PATIENT
  Sex: Male

DRUGS (3)
  1. LIRAGLUTIDE [Interacting]
     Active Substance: LIRAGLUTIDE
     Indication: PRODUCT USED FOR UNKNOWN INDICATION
  2. ATENOLOL. [Interacting]
     Active Substance: ATENOLOL
     Indication: HEART RATE INCREASED
  3. ATENOLOL. [Suspect]
     Active Substance: ATENOLOL
     Indication: BLOOD PRESSURE INCREASED

REACTIONS (2)
  - Drug ineffective [Unknown]
  - Drug interaction [Unknown]
